FAERS Safety Report 24078406 (Version 1)
Quarter: 2024Q3

REPORT INFORMATION
  Report Type: Spontaneous
  Country: US (occurrence: US)
  Receive Date: 20240711
  Receipt Date: 20240711
  Transmission Date: 20241017
  Serious: Yes (Death, Hospitalization)
  Sender: STRIDES
  Company Number: US-STRIDES ARCOLAB LIMITED-2024SP008160

PATIENT

DRUGS (20)
  1. PREDNISOLONE [Suspect]
     Active Substance: PREDNISOLONE
     Indication: Colitis
     Dosage: UNK
     Route: 065
  2. PREDNISOLONE [Suspect]
     Active Substance: PREDNISOLONE
     Dosage: UNK, TAPERED
     Route: 065
  3. DOXORUBICIN [Suspect]
     Active Substance: DOXORUBICIN
     Indication: Malignant splenic neoplasm
     Dosage: UNK, CYCLICAL
     Route: 065
  4. DOXORUBICIN [Suspect]
     Active Substance: DOXORUBICIN
     Indication: Angiosarcoma
  5. IFOSFAMIDE [Suspect]
     Active Substance: IFOSFAMIDE
     Indication: Malignant splenic neoplasm
     Dosage: UNK, CYCLICAL
     Route: 065
  6. IFOSFAMIDE [Suspect]
     Active Substance: IFOSFAMIDE
     Indication: Angiosarcoma
  7. DEXRAZOXANE [Suspect]
     Active Substance: DEXRAZOXANE
     Indication: Malignant splenic neoplasm
     Dosage: UNK, CYCLICAL
     Route: 065
  8. DEXRAZOXANE [Suspect]
     Active Substance: DEXRAZOXANE
     Indication: Angiosarcoma
  9. MESNA [Suspect]
     Active Substance: MESNA
     Indication: Malignant splenic neoplasm
     Dosage: UNK, CYCLICAL X6 CYCLES
     Route: 065
  10. MESNA [Suspect]
     Active Substance: MESNA
     Indication: Angiosarcoma
  11. DOCETAXEL [Suspect]
     Active Substance: DOCETAXEL\DOCETAXEL ANHYDROUS
     Indication: Malignant splenic neoplasm
     Dosage: UNK, CYCLICAL X2 CYCLES
     Route: 065
  12. DOCETAXEL [Suspect]
     Active Substance: DOCETAXEL\DOCETAXEL ANHYDROUS
     Indication: Angiosarcoma
  13. GEMCITABINE [Suspect]
     Active Substance: GEMCITABINE
     Indication: Malignant splenic neoplasm
     Dosage: UNK
     Route: 065
  14. GEMCITABINE [Suspect]
     Active Substance: GEMCITABINE
     Indication: Angiosarcoma
  15. TRABECTEDIN [Suspect]
     Active Substance: TRABECTEDIN
     Indication: Malignant splenic neoplasm
     Dosage: UNK, CYCLICAL X2 CYCLES
     Route: 065
  16. TRABECTEDIN [Suspect]
     Active Substance: TRABECTEDIN
     Indication: Angiosarcoma
  17. METHYLPREDNISOLONE [Suspect]
     Active Substance: METHYLPREDNISOLONE
     Indication: Colitis
     Dosage: UNK
     Route: 065
     Dates: end: 2017
  18. METHYLPREDNISOLONE [Suspect]
     Active Substance: METHYLPREDNISOLONE
     Dosage: UNK, TAPERED
     Route: 065
     Dates: end: 2017
  19. INFLIXIMAB [Suspect]
     Active Substance: INFLIXIMAB
     Indication: Colitis
     Dosage: UNK
     Route: 065
  20. VANCOMYCIN [Concomitant]
     Active Substance: VANCOMYCIN
     Indication: Clostridium difficile infection
     Dosage: UNK
     Route: 065

REACTIONS (5)
  - Pneumococcal sepsis [Fatal]
  - Streptococcal infection [Fatal]
  - Post procedural infection [Fatal]
  - Coronavirus infection [Unknown]
  - Pharyngitis streptococcal [Unknown]
